FAERS Safety Report 7210129-0 (Version None)
Quarter: 2011Q1

REPORT INFORMATION
  Report Type: 
  Country: None (occurrence: None)
  Receive Date: 20110105
  Receipt Date: 20101227
  Transmission Date: 20110831
  Serious: Yes (Hospitalization)
  Sender: FDA-Public Use
  Company Number: FR-ASTELLAS-2010EU006938

PATIENT
  Sex: Female

DRUGS (4)
  1. PROGRAF [Suspect]
     Indication: PROPHYLAXIS AGAINST TRANSPLANT REJECTION
     Dosage: 2 DF, BID
     Route: 048
     Dates: start: 20060101
  2. LASIX [Suspect]
     Dosage: UNK
     Route: 065
     Dates: start: 20100118
  3. ROVAMYCINE [Suspect]
     Dosage: UNK
     Route: 065
     Dates: start: 20100118
  4. TAZOCILLINE [Suspect]
     Dosage: UNK
     Route: 065
     Dates: start: 20100118

REACTIONS (3)
  - RENAL FAILURE ACUTE [None]
  - OVERDOSE [None]
  - DRUG INTERACTION [None]
